FAERS Safety Report 25426321 (Version 1)
Quarter: 2025Q2

REPORT INFORMATION
  Report Type: Report from Study
  Country: CA (occurrence: CA)
  Receive Date: 20250612
  Receipt Date: 20250612
  Transmission Date: 20250717
  Serious: Yes (Hospitalization)
  Sender: TAKEDA
  Company Number: CA-TAKEDA-2025TUS052363

PATIENT
  Sex: Female

DRUGS (8)
  1. VEDOLIZUMAB [Suspect]
     Active Substance: VEDOLIZUMAB
     Indication: Colitis ulcerative
  2. NADOLOL [Concomitant]
     Active Substance: NADOLOL
  3. ONGLYZA [Concomitant]
     Active Substance: SAXAGLIPTIN HYDROCHLORIDE
  4. RAMIPRIL [Concomitant]
     Active Substance: RAMIPRIL
  5. SIMVASTATIN [Concomitant]
     Active Substance: SIMVASTATIN
  6. EZETIMIBE [Concomitant]
     Active Substance: EZETIMIBE
  7. AMLODIPINE [Concomitant]
     Active Substance: AMLODIPINE BESYLATE
  8. Jamp k8 [Concomitant]

REACTIONS (2)
  - Shoulder fracture [Recovering/Resolving]
  - Fall [Recovering/Resolving]
